FAERS Safety Report 21814295 (Version 2)
Quarter: 2023Q1

REPORT INFORMATION
  Report Type: Spontaneous
  Country: US (occurrence: US)
  Receive Date: 20230104
  Receipt Date: 20230112
  Transmission Date: 20230418
  Serious: No
  Sender: FDA-Public Use
  Company Number: US-UNITED THERAPEUTICS-UNT-2022-027880

PATIENT
  Sex: Female
  Weight: 65.76 kg

DRUGS (4)
  1. TYVASO [Suspect]
     Active Substance: TREPROSTINIL
     Indication: Pulmonary arterial hypertension
     Dosage: UNK
     Dates: start: 20220906
  2. TYVASO [Suspect]
     Active Substance: TREPROSTINIL
     Dosage: 72 ?G, QID
     Dates: start: 2022, end: 2022
  3. TYVASO [Suspect]
     Active Substance: TREPROSTINIL
     Dosage: 126 ?G, QID
     Dates: start: 2022
  4. TYVASO [Suspect]
     Active Substance: TREPROSTINIL
     Dosage: 126 ?G, QID
     Dates: start: 2022

REACTIONS (14)
  - Fatigue [Unknown]
  - Ear discomfort [Recovered/Resolved]
  - Malaise [Unknown]
  - Dyspnoea [Unknown]
  - Weight increased [Unknown]
  - Blood pressure decreased [Unknown]
  - Cough [Not Recovered/Not Resolved]
  - Device information output issue [Unknown]
  - Device information output issue [Unknown]
  - Device failure [Unknown]
  - Device failure [Unknown]
  - Unevaluable device issue [Unknown]
  - Extra dose administered [Unknown]
  - Off label use [Unknown]

NARRATIVE: CASE EVENT DATE: 20220101
